FAERS Safety Report 9475148 (Version 3)
Quarter: 2013Q3

REPORT INFORMATION
  Report Type: Report from Study
  Country: MX (occurrence: MX)
  Receive Date: 20130824
  Receipt Date: 20130911
  Transmission Date: 20140515
  Serious: Yes (Death, Other)
  Sender: FDA-Public Use
  Company Number: MX-ROCHE-1266107

PATIENT
  Age: 90 Year
  Sex: Female
  Weight: 47 kg

DRUGS (2)
  1. XELODA [Suspect]
     Indication: GASTROINTESTINAL CARCINOMA
     Dosage: FOR 14 DAYS AND 7 DAYS REST
     Route: 048
     Dates: start: 201203, end: 20121228
  2. XELODA [Suspect]
     Route: 042
     Dates: end: 201302

REACTIONS (4)
  - Disease progression [Fatal]
  - Drug ineffective [Unknown]
  - Cardiac arrest [Fatal]
  - Application site reaction [Unknown]
